FAERS Safety Report 20632124 (Version 2)
Quarter: 2022Q1

REPORT INFORMATION
  Report Type: Spontaneous
  Country: US (occurrence: US)
  Receive Date: 20220324
  Receipt Date: 20220331
  Transmission Date: 20220423
  Serious: No
  Sender: FDA-Public Use
  Company Number: US-PFIZER INC-202200458266

PATIENT
  Age: 77 Year
  Sex: Male

DRUGS (2)
  1. METHYLPREDNISOLONE [Interacting]
     Active Substance: METHYLPREDNISOLONE
     Indication: Sciatica
     Dosage: 4 MG
     Route: 048
     Dates: start: 20210419
  2. IBUPROFEN [Interacting]
     Active Substance: IBUPROFEN
     Indication: Sciatic nerve neuropathy
     Dosage: 800 MG

REACTIONS (1)
  - Drug interaction [Unknown]
